FAERS Safety Report 8180069-1 (Version None)
Quarter: 2012Q1

REPORT INFORMATION
  Report Type: 
  Country: None (occurrence: None)
  Receive Date: 20120302
  Receipt Date: 20120302
  Transmission Date: 20120608
  Serious: Yes (Other)
  Sender: FDA-Public Use
  Company Number: None

PATIENT
  Sex: Female

DRUGS (1)
  1. TRILEPTAL [Suspect]
     Dates: start: 20080214, end: 20080228

REACTIONS (5)
  - HEAD DISCOMFORT [None]
  - PAIN [None]
  - UNEVALUABLE EVENT [None]
  - VISUAL IMPAIRMENT [None]
  - FEAR [None]
